FAERS Safety Report 5318114-0 (Version None)
Quarter: 2007Q1

REPORT INFORMATION
  Report Type: 
  Country: None (occurrence: None)
  Receive Date: 20070201
  Receipt Date: 20060913
  Transmission Date: 20070707
  Serious: Yes (Other)
  Sender: FDA-Public Use
  Company Number: WAES 0609USA02998

PATIENT
  Age: 50 Year
  Sex: Female

DRUGS (1)
  1. PRIMAXIN [Suspect]

REACTIONS (1)
  - ANAPHYLACTIC REACTION [None]
